FAERS Safety Report 7372340-8 (Version None)
Quarter: 2011Q1

REPORT INFORMATION
  Report Type: 
  Country: None (occurrence: None)
  Receive Date: 20110324
  Receipt Date: 20110318
  Transmission Date: 20110831
  Serious: Yes (Other)
  Sender: FDA-Public Use
  Company Number: B0707001A

PATIENT
  Age: 44 Year
  Sex: Male

DRUGS (5)
  1. NORVIR [Concomitant]
     Indication: HIV INFECTION
     Route: 065
  2. INTELENCE [Concomitant]
     Indication: HIV INFECTION
     Route: 065
  3. ISENTRESS [Concomitant]
     Indication: HIV INFECTION
     Route: 065
  4. CELSENTRI [Suspect]
     Indication: HIV INFECTION
     Dosage: 150MG TWICE PER DAY
     Route: 048
     Dates: start: 20110128, end: 20110318
  5. PREZISTA [Concomitant]
     Indication: HIV INFECTION
     Route: 065

REACTIONS (3)
  - FATIGUE [None]
  - ASPARTATE AMINOTRANSFERASE INCREASED [None]
  - ALANINE AMINOTRANSFERASE INCREASED [None]
